FAERS Safety Report 7637745-6 (Version None)
Quarter: 2011Q3

REPORT INFORMATION
  Report Type: 
  Country: None (occurrence: None)
  Receive Date: 20110727
  Receipt Date: 20110720
  Transmission Date: 20111222
  Serious: Yes (Hospitalization, Other)
  Sender: FDA-Public Use
  Company Number: US-BIOGENIDEC-2011BI001512

PATIENT
  Age: 40 Year
  Sex: Male

DRUGS (5)
  1. TYSABRI [Suspect]
     Indication: MULTIPLE SCLEROSIS
     Route: 042
     Dates: start: 20080709
  2. BACLOFEN [Concomitant]
  3. NORTRIPTYLINE HCL [Concomitant]
  4. MULTI-VITAMIN [Concomitant]
  5. ZOLOFT [Concomitant]

REACTIONS (5)
  - WOUND INFECTION [None]
  - EXCORIATION [None]
  - CELLULITIS [None]
  - BETA HAEMOLYTIC STREPTOCOCCAL INFECTION [None]
  - TOXIC SHOCK SYNDROME [None]
